FAERS Safety Report 6846250-6 (Version None)
Quarter: 2010Q3

REPORT INFORMATION
  Report Type: 
  Country: None (occurrence: None)
  Receive Date: 20100715
  Receipt Date: 20070917
  Transmission Date: 20110219
  Serious: No
  Sender: FDA-Public Use
  Company Number: US-PFIZER INC-2007078117

PATIENT
  Sex: Female

DRUGS (7)
  1. CHANTIX [Suspect]
     Indication: SMOKING CESSATION THERAPY
     Route: 048
     Dates: start: 20070905
  2. ATENOLOL [Concomitant]
  3. VITAMINS [Concomitant]
  4. VITAMIN B [Concomitant]
  5. ACETYLSALICYLIC ACID [Concomitant]
  6. HYDROCHLOROTHIAZIDE [Concomitant]
  7. CRESTOR [Concomitant]

REACTIONS (1)
  - NAUSEA [None]
